FAERS Safety Report 21212546 (Version 5)
Quarter: 2023Q2

REPORT INFORMATION
  Report Type: Spontaneous
  Country: US (occurrence: US)
  Receive Date: 20220815
  Receipt Date: 20230414
  Transmission Date: 20230722
  Serious: Yes (Hospitalization)
  Sender: FDA-Public Use
  Company Number: US-PFIZER INC-PV202200042468

PATIENT
  Age: 88 Year
  Sex: Female
  Weight: 58.97 kg

DRUGS (3)
  1. IBRANCE [Suspect]
     Active Substance: PALBOCICLIB
     Indication: Inflammatory carcinoma of the breast
     Dosage: 100MG TABLET BY MOUTH, ONCE A DAY AT NIGHT)
     Route: 048
  2. IBRANCE [Suspect]
     Active Substance: PALBOCICLIB
     Indication: Breast cancer metastatic
  3. LETROZOLE [Concomitant]
     Active Substance: LETROZOLE
     Indication: Blood oestrogen abnormal
     Dosage: 2.5 MG, 1X/DAY (2.5MG TABLET, TAKES ONE IN MORNING EVERYDAY FOR THREE MONTHS)

REACTIONS (10)
  - Pain [Recovered/Resolved]
  - Anger [Recovered/Resolved]
  - Erythema [Recovered/Resolved]
  - Illness [Recovered/Resolved]
  - Sleep disorder [Recovered/Resolved]
  - Gait disturbance [Recovered/Resolved]
  - Abdominal pain upper [Recovered/Resolved]
  - Sciatica [Recovered/Resolved]
  - Dyspepsia [Recovered/Resolved]
  - Pain in extremity [Unknown]
